FAERS Safety Report 6366630-5 (Version None)
Quarter: 2009Q3

REPORT INFORMATION
  Report Type: 
  Country: None (occurrence: None)
  Receive Date: 20090921
  Receipt Date: 20090915
  Transmission Date: 20100115
  Serious: Yes (Death, Hospitalization)
  Sender: FDA-Public Use
  Company Number: PHHY2009BR39660

PATIENT
  Sex: Male

DRUGS (5)
  1. FORASEQ [Suspect]
     Dosage: 12/200 MCG
  2. CAPTOPRIL [Concomitant]
     Indication: HYPERTENSION
     Route: 065
  3. HYDROCHLOROTHIAZIDE [Concomitant]
     Indication: HYPERTENSION
     Route: 065
  4. FLUIMICIL [Concomitant]
     Indication: SECRETION DISCHARGE
     Route: 065
  5. DICLOFENAC [Concomitant]
     Indication: OSTEOARTHRITIS
     Route: 065

REACTIONS (6)
  - CYANOSIS [None]
  - DYSPNOEA [None]
  - INSOMNIA [None]
  - RESPIRATORY FAILURE [None]
  - SECRETION DISCHARGE [None]
  - WHEEZING [None]
